FAERS Safety Report 19179102 (Version 12)
Quarter: 2021Q2

REPORT INFORMATION
  Report Type: Report from Study
  Country: None (occurrence: ES)
  Receive Date: 20210426
  Receipt Date: 20210609
  Transmission Date: 20210717
  Serious: Yes (Hospitalization)
  Sender: FDA-Public Use
  Company Number: ES-ABBVIE-21K-144-3869210-00

PATIENT
  Age: 76 Year
  Sex: Male
  Weight: 88 kg

DRUGS (4)
  1. DUODOPA [Suspect]
     Active Substance: CARBIDOPA\LEVODOPA
     Dosage: MD 12, CD 5.6, ED 4
     Route: 050
     Dates: start: 202104
  2. DUODOPA [Suspect]
     Active Substance: CARBIDOPA\LEVODOPA
     Dosage: MD 12ML, CD 5.6ML, ED 4ML
     Route: 050
     Dates: start: 202104, end: 20210518
  3. DUODOPA [Suspect]
     Active Substance: CARBIDOPA\LEVODOPA
     Indication: PARKINSON^S DISEASE
     Route: 050
     Dates: start: 20210217, end: 202104
  4. DUODOPA [Suspect]
     Active Substance: CARBIDOPA\LEVODOPA
     Dosage: MORNING DOSE 12ML, CONTINUOUS DOSE 5.6ML, EXTRA DOSE 4ML?16 HOURS A DAY
     Route: 050
     Dates: start: 20210529

REACTIONS (7)
  - Escherichia test positive [Recovered/Resolved]
  - Stoma site infection [Recovered/Resolved]
  - Stoma site hypergranulation [Recovering/Resolving]
  - Stoma site erythema [Not Recovered/Not Resolved]
  - Pyrexia [Recovered/Resolved]
  - Stoma site discharge [Not Recovered/Not Resolved]
  - Akinesia [Recovering/Resolving]

NARRATIVE: CASE EVENT DATE: 2021
